FAERS Safety Report 6154737-7 (Version None)
Quarter: 2009Q2

REPORT INFORMATION
  Report Type: 
  Country: None (occurrence: None)
  Receive Date: 20090414
  Receipt Date: 20090407
  Transmission Date: 20091009
  Serious: Yes (Hospitalization)
  Sender: FDA-Public Use
  Company Number: B0568917A

PATIENT
  Sex: Male

DRUGS (2)
  1. CLAMOXYL [Suspect]
     Indication: TOOTH EXTRACTION
     Dosage: 1G SINGLE DOSE
     Route: 048
     Dates: start: 20090313, end: 20090313
  2. ADVIL [Suspect]
     Indication: TOOTH EXTRACTION
     Dosage: 200MG SINGLE DOSE
     Route: 048
     Dates: start: 20090313, end: 20090313

REACTIONS (3)
  - LEUKOCYTOSIS [None]
  - PYREXIA [None]
  - RASH SCARLATINIFORM [None]
